FAERS Safety Report 24650549 (Version 1)
Quarter: 2024Q4

REPORT INFORMATION
  Report Type: Spontaneous
  Country: ES (occurrence: ES)
  Receive Date: 20241122
  Receipt Date: 20241122
  Transmission Date: 20250114
  Serious: Yes (Hospitalization, Other)
  Sender: AUROBINDO
  Company Number: ES-ROCHE-3523027

PATIENT
  Age: 70 Year
  Sex: Male
  Weight: 65.1 kg

DRUGS (31)
  1. CARBOPLATIN [Suspect]
     Active Substance: CARBOPLATIN
     Indication: Non-small cell lung cancer metastatic
     Dosage: 375 MILLIGRAM (ON 19/SEP/2023, HE RECEIVED MOST RECENT DOSE OF CARBOPLATIN (397 MG) PRIOR TO SAE.)
     Route: 042
     Dates: start: 20230801
  2. CARBOPLATIN [Suspect]
     Active Substance: CARBOPLATIN
     Dosage: 397 MILLIGRAM (ON 19/SEP/2023, HE RECEIVED MOST RECENT DOSE OF CARBOPLATIN (397 MG) PRIOR TO SAE)
     Route: 042
  3. PEMETREXED [Suspect]
     Active Substance: PEMETREXED
     Indication: Non-small cell lung cancer metastatic
     Dosage: 889.5 MILLIGRAM (ON 20/FEB/2024, HE RECEIVED MOST RECENT DOSE OF PEMETREXED (398 MG) PRIOR TO SAE.)
     Route: 042
     Dates: start: 20230801
  4. PEMETREXED [Suspect]
     Active Substance: PEMETREXED
     Dosage: 890 MILLIGRAM (ON 20/FEB/2024, HE RECEIVED MOST RECENT DOSE OF CARBOPLATIN (398 MG) PRIOR TO SAE)
     Route: 042
  5. PEMBROLIZUMAB [Suspect]
     Active Substance: PEMBROLIZUMAB
     Indication: Non-small cell lung cancer metastatic
     Dosage: 200 MILLILITER (ON 20/FEB/2024, HE RECEIVED MOST RECENT DOSE OF ATEZOLIZUMAB/PERBROLIZUMAB PRIOR TO
     Route: 042
     Dates: start: 20230801
  6. PEMBROLIZUMAB [Suspect]
     Active Substance: PEMBROLIZUMAB
     Dosage: UNK
     Route: 042
  7. PEMBROLIZUMAB [Suspect]
     Active Substance: PEMBROLIZUMAB
     Dosage: UNK
     Route: 042
  8. PEMBROLIZUMAB [Suspect]
     Active Substance: PEMBROLIZUMAB
     Dosage: UNK
     Route: 042
  9. ATEZOLIZUMAB [Suspect]
     Active Substance: ATEZOLIZUMAB
     Indication: Non-small cell lung cancer metastatic
     Dosage: UNK (ON 20/FEB/2024, HE RECEIVED MOST RECENT DOSE OF ATEZOLIZUMAB/PERBROLIZUMAB PRIOR TO SAE.)
     Route: 042
     Dates: start: 20230801
  10. ATEZOLIZUMAB [Suspect]
     Active Substance: ATEZOLIZUMAB
     Dosage: UNK
     Route: 042
  11. FAMOTIDINE [Concomitant]
     Active Substance: FAMOTIDINE
     Indication: Product used for unknown indication
     Dosage: 20 MILLIGRAM
     Route: 048
     Dates: start: 20230719
  12. PYRIDOXINE HYDROCHLORIDE [Concomitant]
     Active Substance: PYRIDOXINE HYDROCHLORIDE
     Indication: Product used for unknown indication
     Dosage: 300 MILLIGRAM
     Route: 048
     Dates: start: 20230719
  13. ASPIRIN [Concomitant]
     Active Substance: ASPIRIN
     Indication: Product used for unknown indication
     Dosage: 100 MILLIGRAM (DRUG DOSE FIRST ADMINISTERED IS 400 OTHER ;ONGOING: YES)
     Route: 048
     Dates: start: 20200508
  14. ACETAMINOPHEN [Concomitant]
     Active Substance: ACETAMINOPHEN
     Indication: Product used for unknown indication
     Dosage: 1000 MILLIGRAM
     Route: 048
     Dates: start: 20200508
  15. TRAZODONE [Concomitant]
     Active Substance: TRAZODONE HYDROCHLORIDE
     Indication: Product used for unknown indication
     Dosage: 100 MILLIGRAM
     Route: 065
     Dates: start: 20230606
  16. DEXAMETHASONE [Concomitant]
     Active Substance: DEXAMETHASONE
     Indication: Product used for unknown indication
     Dosage: 8 MILLIGRAM
     Route: 048
     Dates: start: 20230731, end: 20240220
  17. Tiamina [Concomitant]
     Indication: Product used for unknown indication
     Dosage: 300 MILLIGRAM
     Route: 048
     Dates: start: 20230719
  18. LEVOTHYROXINE SODIUM [Concomitant]
     Active Substance: LEVOTHYROXINE SODIUM
     Indication: Product used for unknown indication
     Dosage: 125 MILLIGRAM, ONCE A DAY
     Route: 048
     Dates: start: 20231218
  19. LEVOTHYROXINE SODIUM [Concomitant]
     Active Substance: LEVOTHYROXINE SODIUM
     Dosage: 137 MILLIGRAM, ONCE A DAY
     Route: 048
     Dates: start: 20240109, end: 20240926
  20. LEVOTHYROXINE SODIUM [Concomitant]
     Active Substance: LEVOTHYROXINE SODIUM
     Dosage: 150 MILLIGRAM, ONCE A DAY
     Route: 048
     Dates: start: 20240927
  21. ZOLICO [Concomitant]
     Indication: Product used for unknown indication
     Dosage: UNK (YES)
     Route: 065
     Dates: start: 20230719
  22. PIPERACILLIN [Concomitant]
     Active Substance: PIPERACILLIN
     Indication: Neutrophil count decreased
     Dosage: 4 GRAM, ONCE A DAY
     Route: 048
     Dates: start: 20240229, end: 20240307
  23. TAZOBACTAM [Concomitant]
     Active Substance: TAZOBACTAM
     Indication: Neutrophil count decreased
     Dosage: 0.5 MILLIGRAM, ONCE A DAY
     Route: 048
     Dates: start: 20240229, end: 20240307
  24. AMOXICILLIN [Concomitant]
     Active Substance: AMOXICILLIN
     Indication: Neutrophil count decreased
     Dosage: 500 MILLIGRAM, ONCE A DAY
     Route: 048
     Dates: start: 20240229, end: 20240307
  25. CIPROFLOXACIN HYDROCHLORIDE [Concomitant]
     Active Substance: CIPROFLOXACIN HYDROCHLORIDE
     Indication: Neutrophil count decreased
     Dosage: 500 MILLIGRAM, ONCE A DAY
     Route: 048
     Dates: start: 20240229, end: 20240307
  26. METHYLPREDNISOLONE [Concomitant]
     Active Substance: METHYLPREDNISOLONE
     Indication: Arthritis
     Dosage: 80 MILLIGRAM, ONCE A DAY
     Route: 048
     Dates: start: 20240612
  27. METHYLPREDNISOLONE [Concomitant]
     Active Substance: METHYLPREDNISOLONE
     Dosage: 60 MILLIGRAM, ONCE A DAY
     Route: 048
     Dates: start: 20240614, end: 20240615
  28. METHYLPREDNISOLONE [Concomitant]
     Active Substance: METHYLPREDNISOLONE
     Dosage: 40 MILLIGRAM, ONCE A DAY
     Route: 048
     Dates: start: 20240616, end: 20240617
  29. METHYLPREDNISOLONE [Concomitant]
     Active Substance: METHYLPREDNISOLONE
     Dosage: 20 MILLIGRAM, ONCE A DAY
     Route: 048
     Dates: start: 20240618, end: 20240619
  30. PREDNISONE [Concomitant]
     Active Substance: PREDNISONE
     Indication: Prophylaxis
     Dosage: 10 MILLIGRAM, AS NECESSARY
     Route: 048
     Dates: start: 20240619
  31. ZOLEDRONIC ACID [Concomitant]
     Active Substance: ZOLEDRONIC ACID
     Indication: Product used for unknown indication
     Dosage: 4 MILLIGRAM
     Route: 042
     Dates: start: 20240927

REACTIONS (2)
  - Nephritis [Not Recovered/Not Resolved]
  - Colitis [Recovered/Resolved]

NARRATIVE: CASE EVENT DATE: 20240301
